FAERS Safety Report 9677003 (Version 3)
Quarter: 2013Q4

REPORT INFORMATION
  Report Type: Report from Study
  Country: DE (occurrence: DE)
  Receive Date: 20131108
  Receipt Date: 20131218
  Transmission Date: 20140711
  Serious: Yes (Hospitalization)
  Sender: FDA-Public Use
  Company Number: DE-BIOGENIDEC-2013BI106328

PATIENT
  Age: 50 Year
  Sex: Male

DRUGS (8)
  1. TYSABRI [Suspect]
     Indication: RELAPSING-REMITTING MULTIPLE SCLEROSIS
     Route: 042
     Dates: start: 20120625, end: 20130429
  2. LEVADOPA COMP B [Concomitant]
     Indication: PARKINSONISM
     Dates: start: 20130212
  3. ASS 100 [Concomitant]
     Indication: ACUTE MYOCARDIAL INFARCTION
     Dates: start: 20060101
  4. LYRICA [Concomitant]
     Indication: PARAESTHESIA
     Dates: start: 20110101
  5. VESICUR [Concomitant]
     Indication: NEUROGENIC BLADDER
     Dates: start: 20121212
  6. BACLOFEN [Concomitant]
     Indication: MUSCLE SPASTICITY
     Dates: start: 20120101
  7. ORFIFIL LONG [Concomitant]
     Indication: EPILEPSY
     Dates: start: 20130514
  8. AMANTADIN [Concomitant]
     Indication: PARKINSONISM
     Dates: start: 20130826

REACTIONS (1)
  - Monoclonal gammopathy [Not Recovered/Not Resolved]
